FAERS Safety Report 8454404-0 (Version None)
Quarter: 2012Q2

REPORT INFORMATION
  Report Type: 
  Country: None (occurrence: None)
  Receive Date: 20120621
  Receipt Date: 20120614
  Transmission Date: 20120825
  Serious: Yes (Hospitalization)
  Sender: FDA-Public Use
  Company Number: JP-BIOGENIDEC-2011BI002182

PATIENT
  Age: 30 Year
  Sex: Female

DRUGS (14)
  1. AVONEX [Suspect]
     Indication: RELAPSING-REMITTING MULTIPLE SCLEROSIS
     Route: 030
     Dates: start: 20100510
  2. SOLU-MEDROL [Concomitant]
     Dates: start: 20100830, end: 20100901
  3. OLOPATADINE HYDROCHLORIDE [Concomitant]
     Dates: start: 20110609, end: 20110929
  4. BROTIZOLAM [Concomitant]
     Indication: PRODUCT USED FOR UNKNOWN INDICATION
     Dates: start: 20100830, end: 20110112
  5. SOLITA (LACTATED RINGERS SOLUTION) [Concomitant]
     Dates: start: 20101004, end: 20101006
  6. SOLU-MEDROL [Concomitant]
     Dates: start: 20101004, end: 20101006
  7. SOLITA (LACTATED RINGERS SOLUTION) [Concomitant]
     Dates: start: 20100830, end: 20100901
  8. ANTEBATE [Concomitant]
     Dates: start: 20101108
  9. HIRUDOID [Concomitant]
     Dates: start: 20101108
  10. LOXONIN [Concomitant]
     Indication: PRODUCT USED FOR UNKNOWN INDICATION
     Dates: start: 20100603
  11. SELBEX [Concomitant]
     Indication: PRODUCT USED FOR UNKNOWN INDICATION
     Dates: start: 20100830
  12. PREDNISOLONE [Concomitant]
     Dates: start: 20101108
  13. LENDORMIN [Concomitant]
     Indication: PRODUCT USED FOR UNKNOWN INDICATION
     Dates: start: 20110113, end: 20120112
  14. ZITHROMAX [Concomitant]
     Indication: PRODUCT USED FOR UNKNOWN INDICATION
     Dates: start: 20110502, end: 20110504

REACTIONS (12)
  - MUSCLE SPASMS [None]
  - ECZEMA [None]
  - PAIN IN EXTREMITY [None]
  - BRONCHITIS [None]
  - GINGIVAL PAIN [None]
  - RASH [None]
  - PERIPHERAL CIRCULATORY FAILURE [None]
  - HYPOAESTHESIA [None]
  - MULTIPLE SCLEROSIS RELAPSE [None]
  - BLEPHAROSPASM [None]
  - NASOPHARYNGITIS [None]
  - FRACTURED COCCYX [None]
